FAERS Safety Report 6879461-4 (Version None)
Quarter: 2010Q3

REPORT INFORMATION
  Report Type: 
  Country: None (occurrence: None)
  Receive Date: 20100728
  Receipt Date: 20100716
  Transmission Date: 20110219
  Serious: Yes (Hospitalization)
  Sender: FDA-Public Use
  Company Number: JP-WATSON-2010-09835

PATIENT
  Age: 71 Year
  Sex: Male

DRUGS (2)
  1. TERBINAFINE HYDROCHLORIDE (WATSON LABORATORIES) [Suspect]
     Indication: TINEA PEDIS
     Dosage: 250 MG, DAILY
     Route: 048
  2. PREDNISOLONE (WATSON LABORATORIES) [Suspect]
     Indication: DRUG RASH WITH EOSINOPHILIA AND SYSTEMIC SYMPTOMS
     Dosage: 30 MG, DAILY

REACTIONS (3)
  - CYTOMEGALOVIRUS INFECTION [None]
  - DRUG RASH WITH EOSINOPHILIA AND SYSTEMIC SYMPTOMS [None]
  - ILEAL PERFORATION [None]
